FAERS Safety Report 9832929 (Version 1)
Quarter: 2014Q1

REPORT INFORMATION
  Report Type: Spontaneous
  Country: GB (occurrence: GB)
  Receive Date: 20140121
  Receipt Date: 20140121
  Transmission Date: 20141002
  Serious: Yes (Other)
  Sender: FDA-Public Use
  Company Number: GB-009507513-1401GBR008276

PATIENT
  Age: 60 Year
  Sex: Male
  Weight: 75 kg

DRUGS (7)
  1. MONTELUKAST SODIUM [Suspect]
     Indication: ASTHMA
     Dosage: 10 MG, QD
     Route: 048
     Dates: start: 2011, end: 20140104
  2. FLUOXETINE [Concomitant]
     Dosage: 10 ML, UNK
  3. LORATADINE [Concomitant]
     Route: 048
  4. OMEPRAZOLE [Concomitant]
     Dosage: 40 MG, UNK
     Route: 048
  5. RHINOCORT (BECLOMETHASONE DIPROPIONATE) [Concomitant]
  6. SALBUTEROL SULFATE [Concomitant]
  7. SERETIDE [Concomitant]

REACTIONS (6)
  - Choking [Recovered/Resolved]
  - Muscle spasms [Recovered/Resolved]
  - Pain [Unknown]
  - Sleep apnoea syndrome [Unknown]
  - Laryngospasm [Unknown]
  - Musculoskeletal stiffness [Recovered/Resolved]
